FAERS Safety Report 11890760 (Version 2)
Quarter: 2016Q1

REPORT INFORMATION
  Report Type: Spontaneous
  Country: US (occurrence: US)
  Receive Date: 20160105
  Receipt Date: 20160118
  Transmission Date: 20160526
  Serious: Yes (Other)
  Sender: FDA-Public Use
  Company Number: US-ROCHE-1688918

PATIENT
  Age: 45 Year
  Sex: Male

DRUGS (9)
  1. PULMOZYME [Suspect]
     Active Substance: DORNASE ALFA
     Indication: CYSTIC FIBROSIS
     Route: 050
  2. SINGULAIR [Concomitant]
     Active Substance: MONTELUKAST SODIUM
     Indication: ASTHMA
     Route: 048
     Dates: start: 201209
  3. NASOCORT [Concomitant]
     Active Substance: BUDESONIDE
     Indication: SINUSITIS
     Dosage: 2 SPRAYS INH
     Route: 050
     Dates: start: 201309
  4. VITAMIN C [Concomitant]
     Active Substance: ASCORBIC ACID
  5. ALBUTEROL. [Concomitant]
     Active Substance: ALBUTEROL
     Indication: WHEEZING
     Dosage: 2 PUFFS INH
     Route: 050
  6. SYMBICORT [Concomitant]
     Active Substance: BUDESONIDE\FORMOTEROL FUMARATE DIHYDRATE
     Indication: WHEEZING
     Dosage: 2 PUFFS INH
     Route: 050
  7. PROAIR HFA [Concomitant]
     Active Substance: ALBUTEROL SULFATE
  8. HYPERSAL [Concomitant]
     Dosage: MUCOLYTIC
     Route: 050
  9. VITAMIN D3 [Concomitant]
     Active Substance: CHOLECALCIFEROL

REACTIONS (6)
  - Eyelid oedema [Not Recovered/Not Resolved]
  - Pain of skin [Unknown]
  - Eye swelling [Not Recovered/Not Resolved]
  - Mycobacterium avium complex infection [Unknown]
  - Erythema [Unknown]
  - Gingival swelling [Unknown]

NARRATIVE: CASE EVENT DATE: 201511
